FAERS Safety Report 6552491-8 (Version None)
Quarter: 2010Q1

REPORT INFORMATION
  Report Type: 
  Country: None (occurrence: None)
  Receive Date: 20100126
  Receipt Date: 20100121
  Transmission Date: 20100710
  Serious: Yes (Hospitalization)
  Sender: FDA-Public Use
  Company Number: AU-PFIZER INC-2010008703

PATIENT
  Age: 74 Year
  Sex: Male

DRUGS (1)
  1. CHAMPIX [Suspect]
     Dosage: UNK
     Dates: start: 20090101

REACTIONS (4)
  - AGITATION [None]
  - COGNITIVE DISORDER [None]
  - DEMENTIA [None]
  - PARANOIA [None]
